FAERS Safety Report 5355068-5 (Version None)
Quarter: 2007Q2

REPORT INFORMATION
  Report Type: 
  Country: None (occurrence: None)
  Receive Date: 20070531
  Receipt Date: 20070319
  Transmission Date: 20071010
  Serious: Yes (Hospitalization)
  Sender: FDA-Public Use
  Company Number: 2007MP000142

PATIENT
  Age: 72 Year
  Sex: Male

DRUGS (1)
  1. DACOGEN [Suspect]
     Indication: MYELODYSPLASTIC SYNDROME
     Dosage: QD

REACTIONS (2)
  - ASTHENIA [None]
  - OFF LABEL USE [None]
